FAERS Safety Report 12106589 (Version 1)
Quarter: 2016Q1

REPORT INFORMATION
  Report Type: Spontaneous
  Country: FI (occurrence: FI)
  Receive Date: 20160223
  Receipt Date: 20160223
  Transmission Date: 20160526
  Serious: Yes (Other)
  Sender: FDA-Public Use
  Company Number: FI-TAKEDA-2016TUS002850

PATIENT
  Sex: Male

DRUGS (5)
  1. ABSENOR/NATRII VALPROAS [Concomitant]
     Indication: AFFECTIVE DISORDER
     Dosage: 300 MG, QID
     Route: 048
     Dates: start: 20141113
  2. LAMICTAL/LAMOTRIGINUM [Concomitant]
     Indication: AFFECTIVE DISORDER
     Dosage: 100 MG, UNK
     Route: 048
     Dates: start: 20150716
  3. TRINTELLIX [Suspect]
     Active Substance: VORTIOXETINE HYDROBROMIDE
     Indication: ANXIETY
  4. TRINTELLIX [Suspect]
     Active Substance: VORTIOXETINE HYDROBROMIDE
     Indication: DEPRESSION
     Dosage: 15 MG, QD
     Route: 048
     Dates: start: 20151214, end: 20160124
  5. SERDOLECT/SERTINDOLE [Concomitant]
     Indication: AFFECTIVE DISORDER
     Dosage: 12 MG, UNK
     Route: 048
     Dates: start: 20150921

REACTIONS (2)
  - Depression [Recovered/Resolved]
  - Dysphagia [Recovered/Resolved]
